FAERS Safety Report 26179842 (Version 1)
Quarter: 2025Q4

REPORT INFORMATION
  Report Type: Spontaneous
  Country: RU (occurrence: RU)
  Receive Date: 20251219
  Receipt Date: 20251219
  Transmission Date: 20260118
  Serious: Yes (Other)
  Sender: BRISTOL-MYERS SQUIBB COMPANY
  Company Number: RU-BRISTOL-MYERS SQUIBB COMPANY-2025-166843

PATIENT
  Sex: Male

DRUGS (1)
  1. ELIQUIS [Suspect]
     Active Substance: APIXABAN
     Indication: Thrombosis

REACTIONS (7)
  - Thrombosis [Unknown]
  - Hypercoagulation [Unknown]
  - Chest injury [Unknown]
  - Sensory disturbance [Unknown]
  - Self-medication [Unknown]
  - Pain in extremity [Unknown]
  - Pain [Unknown]
